FAERS Safety Report 18998955 (Version 3)
Quarter: 2021Q3

REPORT INFORMATION
  Report Type: Spontaneous
  Country: US (occurrence: US)
  Receive Date: 20210312
  Receipt Date: 20210820
  Transmission Date: 20211014
  Serious: No
  Sender: FDA-Public Use
  Company Number: US-SA-2021SA083873

PATIENT
  Age: 43 Year
  Sex: Female

DRUGS (1)
  1. AUBAGIO [Suspect]
     Active Substance: TERIFLUNOMIDE
     Indication: MULTIPLE SCLEROSIS
     Dosage: 14 MG, QD
     Route: 048
     Dates: start: 20190807

REACTIONS (9)
  - Functional gastrointestinal disorder [Unknown]
  - Sleep disorder [Unknown]
  - Paraesthesia [Not Recovered/Not Resolved]
  - Nocturia [Not Recovered/Not Resolved]
  - Micturition disorder [Unknown]
  - Visual impairment [Unknown]
  - Bladder disorder [Unknown]
  - Unevaluable event [Not Recovered/Not Resolved]
  - Product dose omission issue [Unknown]

NARRATIVE: CASE EVENT DATE: 20210203
